FAERS Safety Report 5064648-6 (Version None)
Quarter: 2006Q3

REPORT INFORMATION
  Report Type: 
  Country: None (occurrence: None)
  Receive Date: 20060706
  Receipt Date: 20060411
  Transmission Date: 20061208
  Serious: No
  Sender: FDA-Public Use
  Company Number: 200612278BWH

PATIENT
  Sex: Male

DRUGS (4)
  1. LEVITRA [Suspect]
     Indication: ERECTILE DYSFUNCTION
     Dosage: ONCE, ORAL
     Route: 048
  2. LIPITOR [Concomitant]
  3. ARB'S [Concomitant]
  4. HYDROCHLOROTHIAZIDE [Concomitant]

REACTIONS (3)
  - FLUSHING [None]
  - HEADACHE [None]
  - NASAL CONGESTION [None]
